FAERS Safety Report 23901353 (Version 1)
Quarter: 2024Q2

REPORT INFORMATION
  Report Type: Spontaneous
  Country: US (occurrence: None)
  Receive Date: 20240526
  Receipt Date: 20240526
  Transmission Date: 20240716
  Serious: No
  Sender: FDA-Public Use
  Company Number: US-ROCHE-3412860

PATIENT
  Age: 52 Year
  Sex: Female

DRUGS (1)
  1. OCREVUS [Suspect]
     Active Substance: OCRELIZUMAB
     Indication: Primary progressive multiple sclerosis
     Dosage: 2ND HALF OF HER FIRST OCREVUS DOSE ON 23/AUG/2023 OR 24/AUG/2023
     Route: 042
     Dates: start: 20230808

REACTIONS (1)
  - Constipation [Not Recovered/Not Resolved]
